FAERS Safety Report 20353247 (Version 3)
Quarter: 2022Q1

REPORT INFORMATION
  Report Type: Report from Study
  Country: US (occurrence: US)
  Receive Date: 20220119
  Receipt Date: 20220209
  Transmission Date: 20220423
  Serious: Yes (Hospitalization)
  Sender: FDA-Public Use
  Company Number: US-PFIZER INC-202200056554

PATIENT
  Age: 35 Year
  Sex: Male
  Weight: 111 kg

DRUGS (8)
  1. VINCRISTINE SULFATE [Suspect]
     Active Substance: VINCRISTINE SULFATE
     Indication: B precursor type acute leukaemia
     Dosage: 1.5 MG/M2, (MAXIMUM 2 MG) IV ON DAYS 15, 22, 43, AND 50. TOTAL DOSE ADMINISTERED THIS COURSE: 8MG
     Route: 042
     Dates: start: 20211123, end: 20220105
  2. CYTARABINE [Suspect]
     Active Substance: CYTARABINE
     Indication: B precursor type acute leukaemia
     Dosage: 75 MG/M2,  IV OR SC ON DAYS 1-4, 8-11, 29-32, 36-39. TD ADMINISTERED THIS COURSE: 3020 MG
     Dates: start: 20211110, end: 20211227
  3. METHOTREXATE SODIUM [Suspect]
     Active Substance: METHOTREXATE SODIUM
     Indication: B precursor type acute leukaemia
     Dosage: 15 MG, ON DAYS 1,8,15,22 [OMIT DOSE ON DAY 15 AND 22 FOR CNS3]. TD ADMINISTERED THIS COURSE: 60MG
     Route: 037
     Dates: start: 20211110, end: 20211222
  4. INOTUZUMAB OZOGAMICIN [Suspect]
     Active Substance: INOTUZUMAB OZOGAMICIN
     Indication: B precursor type acute leukaemia
     Dosage: ON DAY 1, 8 AND 15 OF A 28-DAY CYCLE
     Route: 042
     Dates: end: 20211021
  5. RITUXIMAB [Suspect]
     Active Substance: RITUXIMAB
     Indication: B precursor type acute leukaemia
     Dosage: 375 MG/M2, ON DAYS 1 AND 8 THEN AGAIN ON DAYS 29 AND 36. TD ADMINISTERED THIS COURSE: 3600MG
     Route: 042
     Dates: start: 20211117, end: 20211222
  6. CYCLOPHOSPHAMIDE [Suspect]
     Active Substance: CYCLOPHOSPHAMIDE
     Indication: B precursor type acute leukaemia
     Dosage: 1000 MG/M2, ON DAY 1 AND 29. TOTAL DOSE ADMINISTERED THIS COURSE: 4860 MG
     Route: 042
     Dates: start: 20211110, end: 20211215
  7. MERCAPTOPURINE [Suspect]
     Active Substance: MERCAPTOPURINE
     Indication: B precursor type acute leukaemia
     Dosage: 60 MG/M2, ON DAYS 1-14 AND 29-42. ROUND TO THE NEAREST 25 MG DOSE. TD ADMINISTERED THIS COURSE: 2100
     Route: 048
     Dates: start: 20211215, end: 20220107
  8. ONCASPAR [Suspect]
     Active Substance: PEGASPARGASE
     Indication: B precursor type acute leukaemia
     Dosage: 2000 IU/M2 ON DAYS 15 AND 43 (CAP DOSE AT 3750 IU). TD ADMINISTERED THIS COURSE: 7500 UNIT
     Route: 042
     Dates: start: 20211123, end: 20211229

REACTIONS (1)
  - Sepsis [Recovered/Resolved]

NARRATIVE: CASE EVENT DATE: 20220107
